FAERS Safety Report 23848529 (Version 1)
Quarter: 2024Q2

REPORT INFORMATION
  Report Type: Spontaneous
  Country: US (occurrence: US)
  Receive Date: 20240513
  Receipt Date: 20240513
  Transmission Date: 20240715
  Serious: Yes (Other)
  Sender: FDA-Public Use
  Company Number: US-MYLANLABS-2024M1042446

PATIENT
  Age: 65 Year
  Sex: Female

DRUGS (6)
  1. PREDNISONE [Suspect]
     Active Substance: PREDNISONE
     Indication: Sjogren^s syndrome
     Dosage: UNK, CONTAINING WHEAT STARCH
     Route: 065
     Dates: start: 202011
  2. PREDNISONE [Suspect]
     Active Substance: PREDNISONE
     Indication: Tubulointerstitial nephritis
  3. ABALOPARATIDE [Concomitant]
     Active Substance: ABALOPARATIDE
     Indication: Osteoporosis
     Dosage: 80 MICROGRAM, QD (TREATMENT DISCONTINUED)
     Route: 065
     Dates: start: 202010
  4. ABALOPARATIDE [Concomitant]
     Active Substance: ABALOPARATIDE
     Dosage: UNK, QD (FURTHER RESTARTED)
     Route: 065
     Dates: start: 202010
  5. VITAMIN D3 [Concomitant]
     Active Substance: CHOLECALCIFEROL
     Indication: Supplementation therapy
     Dosage: 2000 INTERNATIONAL UNIT, QD
     Route: 065
  6. CALCIUM CITRATE [Concomitant]
     Active Substance: CALCIUM CITRATE
     Indication: Supplementation therapy
     Dosage: 1200 MILLIGRAM
     Route: 065

REACTIONS (5)
  - Coeliac disease [Recovered/Resolved]
  - Condition aggravated [Recovered/Resolved]
  - Product dispensing error [Unknown]
  - Hyperparathyroidism secondary [Recovered/Resolved]
  - Malabsorption [Recovered/Resolved]
